FAERS Safety Report 6447338-4 (Version None)
Quarter: 2009Q4

REPORT INFORMATION
  Report Type: 
  Country: None (occurrence: None)
  Receive Date: 20091116
  Receipt Date: 20091030
  Transmission Date: 20100525
  Serious: Yes (Other)
  Sender: FDA-Public Use
  Company Number: 2009SP002972

PATIENT
  Age: 16 Year
  Sex: Male

DRUGS (2)
  1. ALVESCO [Suspect]
     Indication: ASTHMA EXERCISE INDUCED
     Dosage: 80 UG;QD;INHALATION
     Route: 055
     Dates: start: 20091026, end: 20091029
  2. ALVESCO [Suspect]
     Indication: BRONCHITIS
     Dosage: 80 UG;QD;INHALATION
     Route: 055
     Dates: start: 20091026, end: 20091029

REACTIONS (3)
  - DYSPNOEA [None]
  - EYE SWELLING [None]
  - URTICARIA [None]
